FAERS Safety Report 6872087-8 (Version None)
Quarter: 2010Q3

REPORT INFORMATION
  Report Type: 
  Country: None (occurrence: None)
  Receive Date: 20100723
  Receipt Date: 20100712
  Transmission Date: 20110219
  Serious: Yes (Other)
  Sender: FDA-Public Use
  Company Number: US-PFIZER INC-2010074996

PATIENT
  Sex: Female
  Weight: 81.6 kg

DRUGS (9)
  1. CHANTIX [Suspect]
     Indication: SMOKING CESSATION THERAPY
     Dosage: 0.5 MG, 1X/DAY
     Route: 048
     Dates: start: 20100606, end: 20100601
  2. CHANTIX [Suspect]
     Dosage: 0.5 MG, 2X/DAY
     Route: 048
     Dates: start: 20100601, end: 20100601
  3. CHANTIX [Suspect]
     Dosage: 1 MG, 2X/DAY
     Route: 048
     Dates: start: 20100601, end: 20100614
  4. NIMODIPINE [Concomitant]
     Indication: CONVULSION
     Dosage: UNK
  5. ELAVIL [Concomitant]
     Indication: NEUROPATHY PERIPHERAL
     Dosage: UNK
  6. PHENOBARBITAL [Concomitant]
     Indication: CONVULSION
     Dosage: UNK
  7. SYNTHROID [Concomitant]
     Indication: THYROID DISORDER
     Dosage: UNK
  8. CLONIDINE [Concomitant]
     Indication: HYPERTENSION
     Dosage: 2 MG, UNK
  9. CATAPRES-TTS-1 [Concomitant]
     Indication: HYPERTENSION
     Dosage: UNK, DAILY

REACTIONS (5)
  - LIP SWELLING [None]
  - SKIN LESION [None]
  - SKIN WRINKLING [None]
  - STOMATITIS [None]
  - SWELLING FACE [None]
